FAERS Safety Report 9129657 (Version 3)
Quarter: 2014Q1

REPORT INFORMATION
  Report Type: Spontaneous
  Country: US (occurrence: US)
  Receive Date: 20130228
  Receipt Date: 20140218
  Transmission Date: 20141002
  Serious: Yes (Hospitalization)
  Sender: FDA-Public Use
  Company Number: US-B.I. PHARMACEUTICALS,INC./RIDGEFIELD-2013-BI-05111BP

PATIENT
  Sex: Male
  Weight: 86.64 kg

DRUGS (9)
  1. PRADAXA [Suspect]
     Indication: PRODUCT USED FOR UNKNOWN INDICATION
     Dosage: 300 MG
     Route: 048
     Dates: start: 20110913, end: 20120117
  2. COREG [Concomitant]
     Dates: start: 2004
  3. SPIRONOLACTONE [Concomitant]
     Dosage: 25 MG
     Route: 048
     Dates: start: 2004, end: 20120117
  4. BUMEX [Concomitant]
     Dates: start: 2004
  5. LOSARTAN [Concomitant]
     Dosage: 100 MG
     Route: 048
     Dates: end: 20120117
  6. LOVASTATIN [Concomitant]
  7. FUROSEMIDE [Concomitant]
  8. BABY ASPIRIN [Concomitant]
     Dosage: 162 MG
     Route: 048
     Dates: end: 20120117
  9. MELOXICAM [Concomitant]
     Dosage: 15 MG
     Route: 048
     Dates: end: 20120117

REACTIONS (2)
  - Gastrointestinal haemorrhage [Unknown]
  - Anaemia [Unknown]
